FAERS Safety Report 8106391-2 (Version None)
Quarter: 2012Q1

REPORT INFORMATION
  Report Type: 
  Country: None (occurrence: None)
  Receive Date: 20120130
  Receipt Date: 20120124
  Transmission Date: 20120608
  Serious: Yes (Death)
  Sender: FDA-Public Use
  Company Number: CIP-2012-00025

PATIENT

DRUGS (1)
  1. IRINOTECAN HCL [Suspect]
     Indication: BILE DUCT CANCER
     Dosage: IDEB-TACE-IRINOT-ECAN ELUTING

REACTIONS (2)
  - CHOLANGITIS [None]
  - HEPATIC FAILURE [None]
